FAERS Safety Report 6882168-0 (Version None)
Quarter: 2010Q3

REPORT INFORMATION
  Report Type: 
  Country: None (occurrence: None)
  Receive Date: 20100729
  Receipt Date: 20100721
  Transmission Date: 20110219
  Serious: Yes (Other)
  Sender: FDA-Public Use
  Company Number: US-SANOFI-AVENTIS-2009SA006536

PATIENT
  Age: 67 Year
  Sex: Male

DRUGS (6)
  1. MULTAQ [Suspect]
     Route: 048
     Dates: start: 20090729
  2. COUMADIN [Suspect]
     Route: 065
     Dates: end: 20090101
  3. COUMADIN [Suspect]
     Dosage: 7.5MG EVERYDAY EXCEPT MONDAY AND FRIDAY 5MG
     Route: 065
     Dates: start: 20090101
  4. ALCOHOL [Suspect]
     Route: 065
     Dates: end: 20100521
  5. AVAPRO [Concomitant]
  6. LIPITOR [Concomitant]

REACTIONS (2)
  - ATRIAL FIBRILLATION [None]
  - INTERNATIONAL NORMALISED RATIO INCREASED [None]
